FAERS Safety Report 12479570 (Version 5)
Quarter: 2017Q3

REPORT INFORMATION
  Report Type: Report from Study
  Country: JP (occurrence: JP)
  Receive Date: 20160620
  Receipt Date: 20170717
  Transmission Date: 20171127
  Serious: Yes (Death, Life-Threatening, Hospitalization, Other)
  Sender: FDA-Public Use
  Company Number: JP-009507513-1606JPN008126

PATIENT
  Age: 64 Year
  Sex: Male

DRUGS (23)
  1. ISENTRESS [Suspect]
     Active Substance: RALTEGRAVIR POTASSIUM
     Indication: HIV INFECTION
     Dosage: 800 MG, UNK
     Route: 048
     Dates: start: 20111227, end: 20160823
  2. FLOMOX [Concomitant]
     Active Substance: CEFCAPENE PIVOXIL HYDROCHLORIDE HYDRATE
     Indication: PROPHYLAXIS
     Dosage: 200 MG, BID
     Route: 048
     Dates: start: 20151119, end: 20151119
  3. ADONA [Concomitant]
     Active Substance: CARBAZOCHROME SODIUM SULFONATE
     Indication: HAEMOSTASIS
     Dosage: 100 MG, QD
     Route: 051
     Dates: start: 20160114, end: 20160117
  4. RENAGEL [Concomitant]
     Active Substance: SEVELAMER HYDROCHLORIDE
     Indication: PROPHYLAXIS
     Dosage: 1000 MG, TID
     Route: 048
     Dates: start: 20160209, end: 20160310
  5. LIVACT [Concomitant]
     Active Substance: AMINO ACIDS
     Indication: LIVER DISORDER
     Dosage: 4.15 G, TID
     Route: 048
     Dates: end: 20160823
  6. KOGENATE-FS [Concomitant]
     Indication: FACTOR VIII DEFICIENCY
     Dosage: 3 KIU, TIW
     Route: 051
     Dates: end: 20160823
  7. TRANSAMIN [Concomitant]
     Active Substance: TRANEXAMIC ACID
     Indication: HAEMOSTASIS
     Dosage: 1000 MG, QD
     Route: 051
     Dates: start: 20160114, end: 20160117
  8. EQUA [Concomitant]
     Active Substance: VILDAGLIPTIN
     Indication: DIABETES MELLITUS
     Dosage: UNK
     Route: 048
  9. TENORMIN [Concomitant]
     Active Substance: ATENOLOL
     Indication: HYPERTENSION
     Dosage: 25 MG, BID
     Route: 048
     Dates: start: 20160209, end: 20160310
  10. REBAMIPIDE [Concomitant]
     Active Substance: REBAMIPIDE
     Indication: PROPHYLAXIS
     Dosage: 100 MG, TID
     Route: 048
     Dates: start: 20160209, end: 20160310
  11. VANCOMYCIN HYDROCHLORIDE. [Concomitant]
     Active Substance: VANCOMYCIN HYDROCHLORIDE
     Dosage: 1 G, TIW
     Route: 065
     Dates: start: 20160219, end: 20160302
  12. FAMOTIDINE OD [Concomitant]
     Active Substance: FAMOTIDINE
     Indication: PROPHYLAXIS
     Dosage: 10 MG, QD
     Route: 048
     Dates: start: 20160209, end: 20160310
  13. GLYCYRON [Concomitant]
     Active Substance: AMMONIUM GLYCYRRHIZATE\GLYCINE\METHIONINE
     Indication: LIVER DISORDER
     Dosage: 2 DF, TID
     Route: 048
     Dates: end: 20160823
  14. URSO [Concomitant]
     Active Substance: URSODIOL
     Indication: LIVER DISORDER
     Dosage: 300 MG, TID
     Route: 048
     Dates: end: 20160823
  15. KALETRA [Suspect]
     Active Substance: LOPINAVIR\RITONAVIR
     Dosage: 2 DF, BID
     Route: 048
     Dates: start: 20130401, end: 20160823
  16. VANCOMYCIN HYDROCHLORIDE. [Concomitant]
     Active Substance: VANCOMYCIN HYDROCHLORIDE
     Indication: URINARY TRACT INFECTION
     Dosage: 1 G, QD
     Route: 065
     Dates: start: 20160120, end: 20160201
  17. ALFACALCIDOL [Concomitant]
     Active Substance: ALFACALCIDOL
     Indication: PROPHYLAXIS
     Dosage: 0.25 MICROGRAM, QD
     Route: 048
     Dates: start: 20160209, end: 20160310
  18. KALETRA [Suspect]
     Active Substance: LOPINAVIR\RITONAVIR
     Dosage: 4 DF, UNK
     Route: 048
     Dates: start: 20061101, end: 20100331
  19. KALETRA [Suspect]
     Active Substance: LOPINAVIR\RITONAVIR
     Dosage: 4 DF, QD
     Route: 048
     Dates: start: 20100401, end: 20130331
  20. SOLYUGEN F [Concomitant]
     Indication: HAEMOSTASIS
     Dosage: 500 ML, QD
     Route: 051
     Dates: start: 20160114, end: 20160117
  21. KALETRA [Suspect]
     Active Substance: LOPINAVIR\RITONAVIR
     Indication: HIV INFECTION
     Dosage: 6 DF, UNK
     Route: 048
     Dates: start: 20040602, end: 20061031
  22. ALBUMIN [Concomitant]
     Active Substance: ALBUMIN HUMAN
     Indication: BLOOD PRESSURE MANAGEMENT
     Dosage: 100 ML, TIW
     Route: 042
     Dates: start: 20160219, end: 20160302
  23. EQUA [Concomitant]
     Active Substance: VILDAGLIPTIN
     Dosage: 50 MG, BID
     Route: 048
     Dates: start: 20160209, end: 20160310

REACTIONS (7)
  - Hyperuricaemia [Not Recovered/Not Resolved]
  - Small intestinal haemorrhage [Recovered/Resolved]
  - Diabetes mellitus [Not Recovered/Not Resolved]
  - Bladder cancer [Fatal]
  - Pyelonephritis [Recovered/Resolved]
  - Lymphocyte count decreased [Not Recovered/Not Resolved]
  - Urinary tract obstruction [Recovered/Resolved]

NARRATIVE: CASE EVENT DATE: 201504
